FAERS Safety Report 10887076 (Version 1)
Quarter: 2015Q1

REPORT INFORMATION
  Report Type: Report from Study
  Country: US (occurrence: US)
  Receive Date: 20150304
  Receipt Date: 20150304
  Transmission Date: 20150721
  Serious: Yes (Other)
  Sender: FDA-Public Use
  Company Number: US-GILEAD-2015-0139046

PATIENT
  Age: 52 Year
  Sex: Female

DRUGS (13)
  1. ADCIRCA [Concomitant]
     Active Substance: TADALAFIL
  2. METOPROLOL [Concomitant]
     Active Substance: METOPROLOL
  3. ASA [Concomitant]
     Active Substance: ASPIRIN
  4. NOVOLIN [Concomitant]
     Active Substance: INSULIN HUMAN
  5. MULTIVITAMINS [Concomitant]
     Active Substance: VITAMINS
  6. REMODULIN [Concomitant]
     Active Substance: TREPROSTINIL
  7. IRON [Concomitant]
     Active Substance: IRON
  8. HYDRALAZINE [Concomitant]
     Active Substance: HYDRALAZINE HYDROCHLORIDE
  9. HYDROCODONE BITARTRATE. [Concomitant]
     Active Substance: HYDROCODONE BITARTRATE
  10. AMBRISENTAN [Suspect]
     Active Substance: AMBRISENTAN
     Indication: COR PULMONALE CHRONIC
     Dosage: 10 MG, QD
     Route: 065
     Dates: start: 20150112
  11. SIMVASTATIN. [Concomitant]
     Active Substance: SIMVASTATIN
  12. BUMETANIDE. [Concomitant]
     Active Substance: BUMETANIDE
  13. DIGOXIN. [Concomitant]
     Active Substance: DIGOXIN

REACTIONS (1)
  - Dialysis [Unknown]
